FAERS Safety Report 4886759-8 (Version None)
Quarter: 2006Q1

REPORT INFORMATION
  Report Type: 
  Country: None (occurrence: None)
  Receive Date: 20060120
  Receipt Date: 20060109
  Transmission Date: 20060701
  Serious: Yes (Other)
  Sender: FDA-Public Use
  Company Number: GB-ROCHE-431615

PATIENT
  Sex: Female

DRUGS (2)
  1. ROACCUTANE [Suspect]
     Indication: ACNE
     Route: 065
  2. DIANETTE [Concomitant]
     Dates: end: 20051015

REACTIONS (2)
  - NO ADVERSE EFFECT [None]
  - PREGNANCY [None]
